FAERS Safety Report 22054942 (Version 1)
Quarter: 2023Q1

REPORT INFORMATION
  Report Type: Spontaneous
  Country: CN (occurrence: CN)
  Receive Date: 20230302
  Receipt Date: 20230302
  Transmission Date: 20230418
  Serious: Yes (Hospitalization, Other)
  Sender: FDA-Public Use
  Company Number: CN-PFIZER INC-PV202300037184

PATIENT
  Age: 78 Year
  Sex: Male

DRUGS (1)
  1. CYTARABINE [Suspect]
     Active Substance: CYTARABINE
     Indication: Acute myeloid leukaemia
     Dosage: 1500 MG, 2X/DAY
     Route: 041
     Dates: start: 20230208, end: 20230211

REACTIONS (5)
  - Myelosuppression [Unknown]
  - Liver injury [Unknown]
  - Gastrointestinal disorder [Unknown]
  - Hepatic failure [Unknown]
  - Oliguria [Unknown]

NARRATIVE: CASE EVENT DATE: 20230210
